FAERS Safety Report 21437361 (Version 2)
Quarter: 2022Q4

REPORT INFORMATION
  Report Type: Report from Study
  Country: JP (occurrence: JP)
  Receive Date: 20221010
  Receipt Date: 20221017
  Transmission Date: 20230113
  Serious: Yes (Hospitalization, Other)
  Sender: FDA-Public Use
  Company Number: JP-ONO-2021JP026178

PATIENT
  Age: 51 Year
  Sex: Male
  Weight: 55.1 kg

DRUGS (76)
  1. NIVOLUMAB [Suspect]
     Active Substance: NIVOLUMAB
     Indication: Pancreatic carcinoma
     Dosage: 480 MILLIGRAM
     Route: 041
     Dates: start: 20210901
  2. NIVOLUMAB [Suspect]
     Active Substance: NIVOLUMAB
     Route: 041
     Dates: start: 20211130
  3. NIVOLUMAB [Suspect]
     Active Substance: NIVOLUMAB
     Route: 041
     Dates: start: 20220509, end: 20220829
  4. GEMCITABINE HYDROCHLORIDE [Suspect]
     Active Substance: GEMCITABINE HYDROCHLORIDE
     Indication: Pancreatic carcinoma
     Route: 041
     Dates: start: 20211130
  5. GEMCITABINE HYDROCHLORIDE [Suspect]
     Active Substance: GEMCITABINE HYDROCHLORIDE
     Dosage: 1200 MG (800MG/M2), 3 ADMINISTRATION/1 WITHDRAWAL
     Route: 041
     Dates: start: 20220509
  6. GEMCITABINE HYDROCHLORIDE [Suspect]
     Active Substance: GEMCITABINE HYDROCHLORIDE
     Dosage: 600 MG/M2, 3 ADMINISTRATION/1 WITHDRAWAL
     Route: 041
  7. GEMCITABINE HYDROCHLORIDE [Suspect]
     Active Substance: GEMCITABINE HYDROCHLORIDE
     Dosage: 900 MG, 1 ADMINISTRATION, 1 OFF
     Route: 041
  8. GIMERACIL\OTERACIL\TEGAFUR [Suspect]
     Active Substance: GIMERACIL\OTERACIL\TEGAFUR
     Indication: Pancreatic carcinoma
     Dosage: 60 MG, Q12H, ORAL ON THE DAY OF IRRADIATION
     Route: 048
     Dates: start: 20210901, end: 20211012
  9. LOPERAMIDE HYDROCHLORIDE [Concomitant]
     Active Substance: LOPERAMIDE HYDROCHLORIDE
     Indication: Diarrhoea
     Dosage: 1 MG, PRN
     Route: 048
     Dates: start: 20211104
  10. LOPERAMIDE HYDROCHLORIDE [Concomitant]
     Active Substance: LOPERAMIDE HYDROCHLORIDE
  11. RYZODEG 70/30 [Concomitant]
     Active Substance: INSULIN ASPART\INSULIN DEGLUDEC
     Indication: Diabetes mellitus
     Dosage: 8-0-8, BEFORE MEALS
     Route: 058
  12. RYZODEG 70/30 [Concomitant]
     Active Substance: INSULIN ASPART\INSULIN DEGLUDEC
     Dosage: 4-0-3, BEFORE MEALS
     Route: 058
  13. RYZODEG 70/30 [Concomitant]
     Active Substance: INSULIN ASPART\INSULIN DEGLUDEC
  14. RYZODEG 70/30 [Concomitant]
     Active Substance: INSULIN ASPART\INSULIN DEGLUDEC
  15. RYZODEG 70/30 [Concomitant]
     Active Substance: INSULIN ASPART\INSULIN DEGLUDEC
  16. RYZODEG 70/30 [Concomitant]
     Active Substance: INSULIN ASPART\INSULIN DEGLUDEC
  17. RYZODEG 70/30 [Concomitant]
     Active Substance: INSULIN ASPART\INSULIN DEGLUDEC
  18. RYZODEG 70/30 [Concomitant]
     Active Substance: INSULIN ASPART\INSULIN DEGLUDEC
  19. RYZODEG 70/30 [Concomitant]
     Active Substance: INSULIN ASPART\INSULIN DEGLUDEC
  20. HUMALOG [Concomitant]
     Active Substance: INSULIN LISPRO
     Indication: Diabetes mellitus
     Dosage: UNK, BEFORE MEALS, DOSAGE ADJUSTMENT ON BLOOD GLUCOSE SCALE
     Route: 058
  21. HUMALOG [Concomitant]
     Active Substance: INSULIN LISPRO
     Dosage: 0-2-0, BEFORE MEALS, SELF-ADJUSTMENT
     Route: 058
  22. HUMALOG [Concomitant]
     Active Substance: INSULIN LISPRO
  23. HUMALOG [Concomitant]
     Active Substance: INSULIN LISPRO
  24. HUMALOG [Concomitant]
     Active Substance: INSULIN LISPRO
  25. HUMALOG [Concomitant]
     Active Substance: INSULIN LISPRO
  26. HUMALOG [Concomitant]
     Active Substance: INSULIN LISPRO
  27. HUMALOG [Concomitant]
     Active Substance: INSULIN LISPRO
  28. HUMALOG [Concomitant]
     Active Substance: INSULIN LISPRO
  29. VONOPRAZAN FUMARATE [Concomitant]
     Active Substance: VONOPRAZAN FUMARATE
     Indication: Prophylaxis
     Dosage: 20 MG, EVERYDAY
     Route: 048
  30. VONOPRAZAN FUMARATE [Concomitant]
     Active Substance: VONOPRAZAN FUMARATE
  31. VONOPRAZAN FUMARATE [Concomitant]
     Active Substance: VONOPRAZAN FUMARATE
  32. VONOPRAZAN FUMARATE [Concomitant]
     Active Substance: VONOPRAZAN FUMARATE
  33. VONOPRAZAN FUMARATE [Concomitant]
     Active Substance: VONOPRAZAN FUMARATE
  34. VONOPRAZAN FUMARATE [Concomitant]
     Active Substance: VONOPRAZAN FUMARATE
  35. VONOPRAZAN FUMARATE [Concomitant]
     Active Substance: VONOPRAZAN FUMARATE
  36. VONOPRAZAN FUMARATE [Concomitant]
     Active Substance: VONOPRAZAN FUMARATE
  37. VONOPRAZAN FUMARATE [Concomitant]
     Active Substance: VONOPRAZAN FUMARATE
  38. MOSAPRIDE CITRATE [Concomitant]
     Active Substance: MOSAPRIDE CITRATE
     Indication: Nausea
     Dosage: UNK, PRN
     Route: 048
     Dates: start: 20211113, end: 20220418
  39. MOSAPRIDE CITRATE [Concomitant]
     Active Substance: MOSAPRIDE CITRATE
  40. MOSAPRIDE CITRATE [Concomitant]
     Active Substance: MOSAPRIDE CITRATE
  41. MOSAPRIDE CITRATE [Concomitant]
     Active Substance: MOSAPRIDE CITRATE
  42. MOSAPRIDE CITRATE [Concomitant]
     Active Substance: MOSAPRIDE CITRATE
  43. MOSAPRIDE CITRATE [Concomitant]
     Active Substance: MOSAPRIDE CITRATE
  44. BEPOTASTINE BESYLATE [Concomitant]
     Active Substance: BEPOTASTINE BESYLATE
     Indication: Prophylaxis
     Dosage: 10 MG, Q12H
     Route: 048
     Dates: start: 20211220
  45. BEPOTASTINE BESYLATE [Concomitant]
     Active Substance: BEPOTASTINE BESYLATE
  46. BEPOTASTINE BESYLATE [Concomitant]
     Active Substance: BEPOTASTINE BESYLATE
  47. BEPOTASTINE BESYLATE [Concomitant]
     Active Substance: BEPOTASTINE BESYLATE
  48. BEPOTASTINE BESYLATE [Concomitant]
     Active Substance: BEPOTASTINE BESYLATE
  49. BEPOTASTINE BESYLATE [Concomitant]
     Active Substance: BEPOTASTINE BESYLATE
  50. SODIUM FERROUS CITRATE [Concomitant]
     Active Substance: SODIUM FERROUS CITRATE
     Indication: Anaemia
     Dosage: 50 MG, Q12H
     Route: 048
     Dates: start: 20220413
  51. SODIUM FERROUS CITRATE [Concomitant]
     Active Substance: SODIUM FERROUS CITRATE
  52. SODIUM FERROUS CITRATE [Concomitant]
     Active Substance: SODIUM FERROUS CITRATE
  53. SODIUM FERROUS CITRATE [Concomitant]
     Active Substance: SODIUM FERROUS CITRATE
  54. SODIUM FERROUS CITRATE [Concomitant]
     Active Substance: SODIUM FERROUS CITRATE
  55. SODIUM FERROUS CITRATE [Concomitant]
     Active Substance: SODIUM FERROUS CITRATE
  56. REBAMIPIDE [Concomitant]
     Active Substance: REBAMIPIDE
     Indication: Prophylaxis
     Dosage: 100 MG, Q8H
     Route: 048
     Dates: start: 20220413
  57. REBAMIPIDE [Concomitant]
     Active Substance: REBAMIPIDE
  58. SUCRALFATE [Concomitant]
     Active Substance: SUCRALFATE
     Indication: Prophylaxis
     Dosage: 1 G, Q8H
     Route: 048
     Dates: start: 20220413
  59. SUCRALFATE [Concomitant]
     Active Substance: SUCRALFATE
  60. SUCRALFATE [Concomitant]
     Active Substance: SUCRALFATE
  61. SUCRALFATE [Concomitant]
     Active Substance: SUCRALFATE
  62. SUCRALFATE [Concomitant]
     Active Substance: SUCRALFATE
  63. SUCRALFATE [Concomitant]
     Active Substance: SUCRALFATE
  64. SOLULACT D [Concomitant]
     Indication: Fluid replacement
     Dosage: 500 ML, ONCE
     Route: 042
     Dates: start: 20220810
  65. SOLULACT D [Concomitant]
  66. SOLMALT [Concomitant]
     Indication: Fluid replacement
     Dosage: 500 ML, ONCE
     Route: 042
     Dates: start: 20220811
  67. SOLMALT [Concomitant]
  68. PROPRANOLOL HYDROCHLORIDE [Concomitant]
     Active Substance: PROPRANOLOL HYDROCHLORIDE
     Indication: Hypertension
     Dosage: 10 MG, EVERYDAY
     Route: 048
     Dates: start: 20220811
  69. PROPRANOLOL HYDROCHLORIDE [Concomitant]
     Active Substance: PROPRANOLOL HYDROCHLORIDE
  70. SENNOSIDES A AND B [Concomitant]
     Active Substance: SENNOSIDES A AND B
     Indication: Constipation
     Dosage: UNK, PRN
     Route: 048
     Dates: start: 20220715
  71. GIMERACIL\OTERACIL\TEGAFUR [Concomitant]
     Active Substance: GIMERACIL\OTERACIL\TEGAFUR
     Indication: Pancreatic carcinoma
     Dosage: 60 MG, Q12H, ORAL ON THE DAY OF IRRADIATION
     Route: 048
     Dates: start: 20210901, end: 20211012
  72. GIMERACIL\OTERACIL\TEGAFUR [Concomitant]
     Active Substance: GIMERACIL\OTERACIL\TEGAFUR
  73. GIMERACIL\OTERACIL\TEGAFUR [Concomitant]
     Active Substance: GIMERACIL\OTERACIL\TEGAFUR
  74. GIMERACIL\OTERACIL\TEGAFUR [Concomitant]
     Active Substance: GIMERACIL\OTERACIL\TEGAFUR
  75. DIETARY SUPPLEMENT\PROBIOTICS [Concomitant]
     Active Substance: DIETARY SUPPLEMENT\PROBIOTICS
     Indication: Diarrhoea
     Dosage: 1 G, Q8H
     Route: 048
     Dates: start: 20211104
  76. DIETARY SUPPLEMENT\PROBIOTICS [Concomitant]
     Active Substance: DIETARY SUPPLEMENT\PROBIOTICS
     Indication: Prophylaxis
     Dosage: 1 G, Q8H
     Route: 048
     Dates: start: 20211201, end: 20220418

REACTIONS (6)
  - Gastroduodenal haemorrhage [Recovered/Resolved]
  - Small intestinal haemorrhage [Recovered/Resolved]
  - Duodenal stenosis [Recovering/Resolving]
  - Biliary tract infection [Recovering/Resolving]
  - Diarrhoea [Recovered/Resolved]
  - Upper gastrointestinal haemorrhage [Recovered/Resolved]

NARRATIVE: CASE EVENT DATE: 20211019
